FAERS Safety Report 24941295 (Version 2)
Quarter: 2025Q1

REPORT INFORMATION
  Report Type: Report from Study
  Country: US (occurrence: US)
  Receive Date: 20250207
  Receipt Date: 20250324
  Transmission Date: 20250408
  Serious: Yes (Other)
  Sender: DR REDDYS
  Company Number: US-drreddys-SPO/USA/23/0187624

PATIENT
  Age: 1 Year
  Sex: Male
  Weight: 11.48 kg

DRUGS (3)
  1. JAVYGTOR [Suspect]
     Active Substance: SAPROPTERIN DIHYDROCHLORIDE
     Indication: Phenylketonuria
     Route: 048
  2. JAVYGTOR [Suspect]
     Active Substance: SAPROPTERIN DIHYDROCHLORIDE
     Indication: Hyperphenylalaninaemia
     Route: 048
  3. IRONUP [Concomitant]
     Indication: Product used for unknown indication
     Route: 065

REACTIONS (4)
  - Pneumonia [Unknown]
  - Drug ineffective [Unknown]
  - Refusal of treatment by relative [Unknown]
  - Overdose [Unknown]
